FAERS Safety Report 9538670 (Version 1)
Quarter: 2013Q3

REPORT INFORMATION
  Report Type: Spontaneous
  Country: FR (occurrence: FR)
  Receive Date: 20130920
  Receipt Date: 20130920
  Transmission Date: 20140515
  Serious: Yes (Life-Threatening, Other)
  Sender: FDA-Public Use
  Company Number: FR-RANBAXY-2013R1-73355

PATIENT
  Age: 50 Year
  Sex: Female

DRUGS (1)
  1. CLORAZEPATE [Suspect]
     Indication: ANXIETY
     Dosage: UNK
     Route: 065

REACTIONS (1)
  - Coma [Recovered/Resolved]
